FAERS Safety Report 5884730-0 (Version None)
Quarter: 2008Q3

REPORT INFORMATION
  Report Type: 
  Country: None (occurrence: None)
  Receive Date: 20080916
  Receipt Date: 20080908
  Transmission Date: 20090109
  Serious: Yes (Hospitalization)
  Sender: FDA-Public Use
  Company Number: US-AVENTIS-200815884US

PATIENT
  Sex: Male

DRUGS (2)
  1. LOVENOX [Suspect]
     Route: 051
     Dates: start: 20071201
  2. LOVENOX [Suspect]
     Route: 051
     Dates: start: 20071201

REACTIONS (4)
  - CHILLS [None]
  - THERAPEUTIC PRODUCT CONTAMINATION [None]
  - THROAT TIGHTNESS [None]
  - TREMOR [None]
